FAERS Safety Report 4980147-1 (Version None)
Quarter: 2006Q2

REPORT INFORMATION
  Report Type: 
  Country: None (occurrence: None)
  Receive Date: 20060421
  Receipt Date: 20050829
  Transmission Date: 20061013
  Serious: Yes (Hospitalization, Disabling, Other)
  Sender: FDA-Public Use
  Company Number: US-MERCK-0508USA04674

PATIENT
  Age: 43 Year
  Sex: Male
  Weight: 114 kg

DRUGS (8)
  1. VIOXX [Suspect]
     Indication: ARTHRITIS
     Route: 048
     Dates: start: 20000101, end: 20020101
  2. VIOXX [Suspect]
     Route: 048
     Dates: start: 20000101, end: 20020101
  3. VIOXX [Suspect]
     Route: 048
     Dates: start: 20000101, end: 20020101
  4. VIOXX [Suspect]
     Route: 048
     Dates: start: 20000101, end: 20020101
  5. VIOXX [Suspect]
     Indication: TENDONITIS
     Route: 048
     Dates: start: 20000101, end: 20020101
  6. VIOXX [Suspect]
     Route: 048
     Dates: start: 20000101, end: 20020101
  7. VIOXX [Suspect]
     Route: 048
     Dates: start: 20000101, end: 20020101
  8. VIOXX [Suspect]
     Route: 048
     Dates: start: 20000101, end: 20020101

REACTIONS (12)
  - ARTHROPATHY [None]
  - BACK DISORDER [None]
  - BACK INJURY [None]
  - CHEST PAIN [None]
  - CORONARY ARTERY OCCLUSION [None]
  - FATIGUE [None]
  - HYPERTENSION [None]
  - ISCHAEMIC CARDIOMYOPATHY [None]
  - JOINT INJURY [None]
  - MYOCARDIAL INFARCTION [None]
  - OSTEONECROSIS [None]
  - OVERDOSE [None]
